FAERS Safety Report 10159434 (Version 1)
Quarter: 2014Q2

REPORT INFORMATION
  Report Type: Spontaneous
  Country: US (occurrence: None)
  Receive Date: 20140506
  Receipt Date: 20140506
  Transmission Date: 20141212
  Serious: No
  Sender: FDA-Public Use
  Company Number: US-ALSI-201400060

PATIENT
  Age: 28 Year
  Sex: Female

DRUGS (2)
  1. HELIUM [Suspect]
     Indication: OBLITERATIVE BRONCHIOLITIS
     Dosage: 60 % TOTAL RESPIRATORY
  2. OXYGEN [Suspect]
     Indication: OBLITERATIVE BRONCHIOLITIS
     Dosage: 40 % TOTAL RESPIRATORY

REACTIONS (5)
  - Mental status changes [None]
  - Crepitations [None]
  - Hypercapnia [None]
  - Off label use [None]
  - Multi-organ failure [None]
